FAERS Safety Report 23677854 (Version 1)
Quarter: 2024Q1

REPORT INFORMATION
  Report Type: Spontaneous
  Country: GB (occurrence: GB)
  Receive Date: 20240327
  Receipt Date: 20240327
  Transmission Date: 20240410
  Serious: Yes (Other)
  Sender: FDA-Public Use
  Company Number: None

PATIENT
  Age: 61 Year
  Sex: Male
  Weight: 69 kg

DRUGS (13)
  1. DOXYCYCLINE [Suspect]
     Active Substance: DOXYCYCLINE
     Dosage: UNK
     Dates: start: 20231229
  2. CALCIUM CARBONATE [Concomitant]
     Active Substance: CALCIUM CARBONATE
     Dosage: 1 DF, 2X/DAY
     Dates: start: 20230928, end: 20240201
  3. ASPIRIN [Concomitant]
     Active Substance: ASPIRIN
     Indication: Peripheral vascular disorder
     Dosage: 1 DF, 1X/DAY
     Dates: start: 20230419
  4. ATORVASTATIN [Concomitant]
     Active Substance: ATORVASTATIN
     Dosage: EACH NIGHT
     Dates: start: 20230928
  5. CETIRIZINE [Concomitant]
     Active Substance: CETIRIZINE HYDROCHLORIDE
     Dosage: GIVE ONCE DAILY IF REQUIRED.
     Dates: start: 20231224, end: 20231231
  6. HALOPERIDOL [Concomitant]
     Active Substance: HALOPERIDOL
     Dosage: 0.5-1.5MG SC EVERY 4HOURS AS REQUIRED
     Route: 058
     Dates: start: 20231224, end: 20231229
  7. BUTYLSCOPOLAMINE BROMIDE [Concomitant]
     Active Substance: BUTYLSCOPOLAMINE BROMIDE
     Dosage: EVERY 4HRS AS REQUIRED FOR SECRETIONS (...
     Route: 058
     Dates: start: 20231224, end: 20231229
  8. LACTULOSE [Concomitant]
     Active Substance: LACTULOSE
     Dosage: THREE TIMES A DAY WHEN REQUIRED (TO SOFTE...
     Dates: start: 20230419
  9. LANSOPRAZOLE [Concomitant]
     Active Substance: LANSOPRAZOLE
     Dosage: 1 DF, 1X/DAY
     Dates: start: 20230928
  10. POLYETHYLENE GLYCOL 3350\POTASSIUM CHLORIDE\SODIUM BICARBONATE\SODIUM [Concomitant]
     Active Substance: POLYETHYLENE GLYCOL 3350\POTASSIUM CHLORIDE\SODIUM BICARBONATE\SODIUM CHLORIDE
     Indication: Constipation
     Dosage: 2-3 DAILY IF NEEDED
     Dates: start: 20230404
  11. MIDAZOLAM [Concomitant]
     Active Substance: MIDAZOLAM
     Dosage: 2.5-5MG SC EVERY ONE HOUR WHEN REQUIRED FOR SED...
     Route: 058
     Dates: start: 20231224, end: 20231229
  12. MORPHINE SULFATE [Concomitant]
     Active Substance: MORPHINE SULFATE
     Dosage: 1.25-2.5MG SC EVERY HOUR WHEN REQUIRED
     Route: 058
     Dates: start: 20231224, end: 20231231
  13. WATER [Concomitant]
     Active Substance: WATER
     Dosage: USE TO MIX WITH DRUGS IN SYRINGE DRIVER
     Dates: start: 20231224, end: 20231229

REACTIONS (1)
  - Lip swelling [Recovered/Resolved]

NARRATIVE: CASE EVENT DATE: 20231229
